FAERS Safety Report 8453023-X (Version None)
Quarter: 2012Q2

REPORT INFORMATION
  Report Type: 
  Country: None (occurrence: None)
  Receive Date: 20120620
  Receipt Date: 20120511
  Transmission Date: 20120825
  Serious: No
  Sender: FDA-Public Use
  Company Number: US-VERTEX PHARMACEUTICALS INC.-AE-2012-006488

PATIENT
  Sex: Female
  Weight: 59.02 kg

DRUGS (3)
  1. RIBAVIRIN [Concomitant]
     Indication: HEPATITIS C
     Dates: start: 20120328, end: 20120501
  2. INCIVEK [Suspect]
     Indication: HEPATITIS C
     Route: 048
     Dates: start: 20120328, end: 20120501
  3. PEGASYS [Concomitant]
     Indication: HEPATITIS C
     Dates: start: 20120328, end: 20120501

REACTIONS (11)
  - WEIGHT DECREASED [None]
  - URTICARIA [None]
  - TINNITUS [None]
  - RASH [None]
  - EYE PAIN [None]
  - HEADACHE [None]
  - DEHYDRATION [None]
  - CHILLS [None]
  - ANAEMIA [None]
  - DIZZINESS [None]
  - WHITE BLOOD CELL COUNT DECREASED [None]
